FAERS Safety Report 8137841-3 (Version None)
Quarter: 2012Q1

REPORT INFORMATION
  Report Type: 
  Country: None (occurrence: None)
  Receive Date: 20120215
  Receipt Date: 20120210
  Transmission Date: 20120608
  Serious: Yes (Life-Threatening, Hospitalization)
  Sender: FDA-Public Use
  Company Number: US-BAYER-2011-062468

PATIENT
  Age: 30 Year
  Sex: Female
  Weight: 100 kg

DRUGS (3)
  1. KEPPRA [Concomitant]
  2. YAZ [Suspect]
     Indication: ORAL CONTRACEPTION
     Dosage: UNK
     Dates: start: 20070501, end: 20070701
  3. LEVETIRACETAM [Concomitant]

REACTIONS (6)
  - PAIN [None]
  - INTRACRANIAL VENOUS SINUS THROMBOSIS [None]
  - GENERAL PHYSICAL HEALTH DETERIORATION [None]
  - ASTHENIA [None]
  - CONVULSION [None]
  - FATIGUE [None]
